FAERS Safety Report 5682147-5 (Version None)
Quarter: 2008Q1

REPORT INFORMATION
  Report Type: 
  Country: None (occurrence: None)
  Receive Date: 20080327
  Receipt Date: 20080319
  Transmission Date: 20080703
  Serious: Yes (Hospitalization)
  Sender: FDA-Public Use
  Company Number: CH-RB-000537-08

PATIENT
  Age: 79 Year
  Sex: Male

DRUGS (11)
  1. GABAPENTIN [Suspect]
     Indication: EPILEPSY
     Route: 048
  2. KEPPRA [Suspect]
     Indication: EPILEPSY
     Route: 048
  3. SERTRALINE [Suspect]
     Indication: DRUG USE FOR UNKNOWN INDICATION
     Route: 065
  4. SIMCORA [Concomitant]
     Indication: DRUG USE FOR UNKNOWN INDICATION
     Dosage: DOSAGE UNKNOWN
     Route: 065
  5. DAFALGAN [Concomitant]
     Indication: DRUG USE FOR UNKNOWN INDICATION
     Dosage: DOSAGE UNKNOWN
     Route: 065
  6. BUPRENORPHINE HCL [Suspect]
     Indication: PAIN
     Route: 060
     Dates: start: 20080112, end: 20080119
  7. SINTROM [Concomitant]
     Indication: ATRIAL FLUTTER
     Dosage: DOSAGE UNKNOWN
     Route: 065
  8. SINTROM [Concomitant]
     Indication: ATRIAL FIBRILLATION
     Dosage: DOSAGE UNKNOWN
     Route: 065
  9. ENATEC [Concomitant]
     Dosage: DOSAGE UNKNOWN
     Route: 065
  10. DUPHALAC [Concomitant]
     Indication: DRUG USE FOR UNKNOWN INDICATION
     Dosage: DOSAGE UNKNOWN
     Route: 065
  11. EMODELLA [Concomitant]
     Indication: DRUG USE FOR UNKNOWN INDICATION
     Dosage: DOSAGE UNKNOWN
     Route: 065

REACTIONS (4)
  - HYPOTENSION [None]
  - PNEUMONIA ASPIRATION [None]
  - SEPTIC SHOCK [None]
  - SOMNOLENCE [None]
